FAERS Safety Report 16114470 (Version 1)
Quarter: 2019Q1

REPORT INFORMATION
  Report Type: Spontaneous
  Country: DE (occurrence: DE)
  Receive Date: 20190325
  Receipt Date: 20190325
  Transmission Date: 20190418
  Serious: Yes (Death)
  Sender: FDA-Public Use
  Company Number: DE-009507513-1903DEU008660

PATIENT
  Age: 54 Year
  Sex: Male

DRUGS (40)
  1. DECORTILEN [Concomitant]
     Indication: IMMUNOSUPPRESSION
     Route: 042
  2. GERNEBCIN [Suspect]
     Active Substance: TOBRAMYCIN SULFATE
     Indication: PROPHYLAXIS
     Dosage: UNK
     Route: 042
     Dates: start: 19960731
  3. CYMEVENE [GANCICLOVIR SODIUM] [Suspect]
     Active Substance: GANCICLOVIR SODIUM
     Indication: PROPHYLAXIS
     Route: 042
     Dates: start: 19960731
  4. CYTOTECT [Suspect]
     Active Substance: HUMAN CYTOMEGALOVIRUS IMMUNE GLOBULIN
     Indication: OEDEMA
     Route: 042
  5. DEXTROSE. [Concomitant]
     Active Substance: DEXTROSE
     Indication: HYPOGLYCAEMIA
     Route: 042
     Dates: start: 19960709
  6. POLYMYXIN [Concomitant]
     Active Substance: POLYMYXIN
     Indication: GASTROINTESTINAL DISORDER
     Route: 042
     Dates: end: 19960711
  7. TRASYLOL [Concomitant]
     Active Substance: APROTININ
     Indication: HAEMORRHAGE
     Route: 042
  8. CYTOTEC [Suspect]
     Active Substance: MISOPROSTOL
     Indication: ANTIVIRAL PROPHYLAXIS
     Dosage: UNK
     Route: 042
     Dates: start: 19960801
  9. FUROSEMIDE. [Suspect]
     Active Substance: FUROSEMIDE
     Indication: OEDEMA
     Route: 042
     Dates: start: 19960709, end: 19960729
  10. ALBUMIN HUMAN [Concomitant]
     Active Substance: ALBUMIN HUMAN
     Route: 065
  11. INZOLEN [Concomitant]
     Active Substance: MAGNESIUM ASPARTATE\POTASSIUM ASPARTATE
     Indication: MINERAL DEFICIENCY
     Route: 042
     Dates: end: 19960729
  12. POTASSIUM CHLORIDE. [Concomitant]
     Active Substance: POTASSIUM CHLORIDE
     Indication: HYPOKALAEMIA
     Route: 042
     Dates: start: 19960709, end: 19960729
  13. BLOOD, PLASMA [Concomitant]
     Active Substance: HUMAN PLASMA
     Route: 065
  14. DIPIDOLOR [Concomitant]
     Active Substance: PIRITRAMIDE
     Indication: PAIN
     Route: 042
     Dates: start: 19960709, end: 19960712
  15. MIDAZOLAM [Suspect]
     Active Substance: MIDAZOLAM HYDROCHLORIDE
     Indication: OEDEMA
     Dosage: 10 MILLIGRAM, HOURS
     Route: 042
  16. GERNEBCIN [Suspect]
     Active Substance: TOBRAMYCIN SULFATE
     Dosage: UNK
     Route: 042
     Dates: end: 19960713
  17. DOPAMINE [Concomitant]
     Active Substance: DOPAMINE\DOPAMINE HYDROCHLORIDE
     Route: 065
  18. SANDIMMUN [Concomitant]
     Active Substance: CYCLOSPORINE
     Indication: IMMUNOSUPPRESSION
     Route: 042
     Dates: start: 19960712
  19. TUTOFUSIN [Concomitant]
     Indication: FLUID REPLACEMENT
     Route: 042
  20. URBASON [Concomitant]
     Active Substance: METHYLPREDNISOLONE
     Indication: IMMUNOSUPPRESSION
     Route: 048
     Dates: start: 19960709, end: 19960727
  21. XYLIT [Concomitant]
     Indication: PARENTERAL NUTRITION
     Route: 042
     Dates: start: 19960709, end: 19960729
  22. CYTOTEC [Suspect]
     Active Substance: MISOPROSTOL
     Dosage: UNK
     Route: 042
  23. POTASSIUM PHOSPHATE, DIBASIC [Concomitant]
     Active Substance: POTASSIUM PHOSPHATE, DIBASIC
     Indication: HYPOPHOSPHATAEMIA
     Route: 042
     Dates: end: 19960718
  24. AMINOFUSIN [Concomitant]
     Indication: MALNUTRITION
     Route: 042
     Dates: start: 19960709
  25. FENTANYL. [Concomitant]
     Active Substance: FENTANYL
     Indication: SEDATION
     Route: 042
  26. FRAXIPARIN [Concomitant]
     Active Substance: NADROPARIN CALCIUM
     Indication: THROMBOSIS PROPHYLAXIS
     Route: 042
  27. RANITIDINE. [Concomitant]
     Active Substance: RANITIDINE
     Indication: ABDOMINAL DISCOMFORT
     Route: 048
     Dates: start: 19960709, end: 19960727
  28. IMUREK (AZATHIOPRINE) [Concomitant]
     Active Substance: AZATHIOPRINE
     Indication: IMMUNOSUPPRESSION
     Route: 042
  29. ACETYLCYSTEINE. [Concomitant]
     Active Substance: ACETYLCYSTEINE
     Indication: RESPIRATORY DISORDER
     Route: 042
     Dates: start: 19960713
  30. SELENASE [Concomitant]
     Indication: MINERAL DEFICIENCY
     Route: 042
     Dates: start: 19960709, end: 19960729
  31. ZIENAM 500 [Suspect]
     Active Substance: CILASTATIN SODIUM\IMIPENEM
     Indication: PROPHYLAXIS
     Dosage: 1.5 GRAM, DAY
     Route: 042
     Dates: start: 19960731
  32. ZIENAM 500 [Suspect]
     Active Substance: CILASTATIN SODIUM\IMIPENEM
     Dosage: 1.5 GRAM, DAY
     Route: 042
  33. ANTILYMPHOCYTE IMMUNOGLOBULIN [Concomitant]
     Active Substance: THYMOCYTE IMMUNE GLOBULIN NOS
     Indication: PROPHYLAXIS
     Route: 042
  34. CERNEVIT [Concomitant]
     Active Substance: VITAMINS
     Indication: HYPOVITAMINOSIS
     Route: 042
     Dates: start: 19960709, end: 19960729
  35. GERNEBCIN [Suspect]
     Active Substance: TOBRAMYCIN SULFATE
     Indication: OEDEMA
     Route: 042
  36. LIPOFUNDIN [Concomitant]
     Active Substance: EGG PHOSPHOLIPIDS\GLYCERIN\SOYBEAN OIL
     Indication: HYPOLIPIDAEMIA
     Route: 042
     Dates: start: 19960709
  37. URSOFALK [Concomitant]
     Active Substance: URSODIOL
     Indication: BILIARY COLIC
     Route: 048
     Dates: start: 19960715, end: 19960727
  38. ZIENAM 500 [Suspect]
     Active Substance: CILASTATIN SODIUM\IMIPENEM
     Indication: OEDEMA
     Route: 042
  39. AMPHO MORONAL [Concomitant]
     Active Substance: AMPHOTERICIN B
     Indication: PROPHYLAXIS
     Route: 048
     Dates: end: 19960711
  40. GENTAMICIN. [Concomitant]
     Active Substance: GENTAMICIN
     Indication: PROPHYLAXIS
     Route: 042
     Dates: end: 19960711

REACTIONS (3)
  - Circulatory collapse [Fatal]
  - Stevens-Johnson syndrome [Fatal]
  - Multiple organ dysfunction syndrome [Fatal]

NARRATIVE: CASE EVENT DATE: 19960802
